FAERS Safety Report 6061191-2 (Version None)
Quarter: 2009Q1

REPORT INFORMATION
  Report Type: 
  Country: None (occurrence: None)
  Receive Date: 20090202
  Receipt Date: 20090126
  Transmission Date: 20090719
  Serious: Yes (Other)
  Sender: FDA-Public Use
  Company Number: US-PFIZER INC-2009161559

PATIENT
  Sex: Female

DRUGS (3)
  1. ATARAX [Suspect]
  2. HYDROXYZINE HCL [Suspect]
  3. ZYRTEC [Suspect]

REACTIONS (4)
  - BALANCE DISORDER [None]
  - FALL [None]
  - SEDATION [None]
  - SURGERY [None]
